FAERS Safety Report 17897446 (Version 11)
Quarter: 2023Q1

REPORT INFORMATION
  Report Type: Report from Study
  Country: US (occurrence: US)
  Receive Date: 20200616
  Receipt Date: 20230303
  Transmission Date: 20230417
  Serious: Yes (Hospitalization, Other)
  Sender: FDA-Public Use
  Company Number: US-SHIRE-US202019455

PATIENT
  Age: 66 Year
  Sex: Female

DRUGS (1)
  1. HUMAN IMMUNOGLOBULIN G [Suspect]
     Active Substance: HUMAN IMMUNOGLOBULIN G
     Indication: Primary immunodeficiency syndrome
     Dosage: UNK
     Route: 058

REACTIONS (30)
  - Weight decreased [Recovered/Resolved]
  - Spinal fracture [Not Recovered/Not Resolved]
  - Atrial fibrillation [Recovered/Resolved]
  - Sepsis [Recovered/Resolved with Sequelae]
  - Urinary tract infection [Recovered/Resolved with Sequelae]
  - Cataract [Recovered/Resolved]
  - Delirium [Recovering/Resolving]
  - Limb injury [Recovering/Resolving]
  - Respiratory tract infection [Recovering/Resolving]
  - COVID-19 [Recovered/Resolved with Sequelae]
  - Fall [Recovering/Resolving]
  - Ehlers-Danlos syndrome [Not Recovered/Not Resolved]
  - Lung opacity [Not Recovered/Not Resolved]
  - Cervix disorder [Not Recovered/Not Resolved]
  - Post-acute COVID-19 syndrome [Not Recovered/Not Resolved]
  - Joint effusion [Recovering/Resolving]
  - Cardiomegaly [Not Recovered/Not Resolved]
  - Dizziness [Unknown]
  - Malaise [Unknown]
  - Asthenia [Unknown]
  - Pain [Recovering/Resolving]
  - Neck pain [Not Recovered/Not Resolved]
  - Post procedural complication [Recovering/Resolving]
  - Procedural nausea [Recovering/Resolving]
  - Paranoia [Recovering/Resolving]
  - Insurance issue [Recovering/Resolving]
  - Hypoaesthesia [Recovering/Resolving]
  - Paraesthesia [Recovering/Resolving]
  - Amnesia [Recovering/Resolving]
  - Product dose omission issue [Recovering/Resolving]

NARRATIVE: CASE EVENT DATE: 20210501
